APPROVED DRUG PRODUCT: VERAPAMIL HYDROCHLORIDE
Active Ingredient: VERAPAMIL HYDROCHLORIDE
Strength: 240MG
Dosage Form/Route: TABLET, EXTENDED RELEASE;ORAL
Application: A206173 | Product #002 | TE Code: AB
Applicant: CADILA PHARMACEUTICALS LTD
Approved: May 5, 2017 | RLD: No | RS: No | Type: RX